FAERS Safety Report 10235221 (Version 1)
Quarter: 2014Q2

REPORT INFORMATION
  Report Type: Spontaneous
  Country: IN (occurrence: None)
  Receive Date: 20140611
  Receipt Date: 20140611
  Transmission Date: 20141212
  Serious: Yes (Life-Threatening, Other)
  Sender: FDA-Public Use
  Company Number: 2014ECL00003

PATIENT
  Age: 35 Year
  Sex: Male

DRUGS (2)
  1. NEOSTIGMINE [Suspect]
     Indication: NEUROMUSCULAR BLOCKADE REVERSAL
     Route: 042
  2. GLYCOPYRROLATE [Concomitant]

REACTIONS (6)
  - Ventricular tachycardia [None]
  - Cardiac arrest [None]
  - Product quality issue [None]
  - Hypotension [None]
  - Blood pressure systolic decreased [None]
  - Blood pressure increased [None]
